FAERS Safety Report 25188400 (Version 1)
Quarter: 2025Q2

REPORT INFORMATION
  Report Type: Report from Study
  Country: US (occurrence: US)
  Receive Date: 20250411
  Receipt Date: 20250411
  Transmission Date: 20250717
  Serious: Yes (Death)
  Sender: ROCHE
  Company Number: US-ROCHE-10000254049

PATIENT
  Age: 35 Year
  Sex: Female

DRUGS (12)
  1. OCREVUS [Suspect]
     Active Substance: OCRELIZUMAB
     Indication: Multiple sclerosis
     Dosage: DATE OF SECOND ADMINISTRATION24-SEP-2020?FIRST TWO 300 MG ADMINISTRATIONS SEPARATEDBY TWO WEEKS, SUB
     Route: 042
     Dates: start: 20200924, end: 20200924
  2. OCREVUS [Suspect]
     Active Substance: OCRELIZUMAB
     Dosage: DATE OF SECOND ADMINISTRATION24-SEP-2020?FIRST TWO 300 MG ADMINISTRATIONS SEPARATEDBY TWO WEEKS, SUB
     Route: 042
     Dates: start: 20210312
  3. OCREVUS [Suspect]
     Active Substance: OCRELIZUMAB
     Dosage: DATE OF SECOND ADMINISTRATION24-SEP-2020?FIRST TWO 300 MG ADMINISTRATIONS SEPARATEDBY TWO WEEKS, SUB
     Route: 042
     Dates: start: 20211012
  4. OCREVUS [Suspect]
     Active Substance: OCRELIZUMAB
     Dosage: DATE OF SECOND ADMINISTRATION24-SEP-2020?FIRST TWO 300 MG ADMINISTRATIONS SEPARATEDBY TWO WEEKS, SUB
     Route: 042
     Dates: start: 20220504
  5. OCREVUS [Suspect]
     Active Substance: OCRELIZUMAB
     Dosage: DATE OF SECOND ADMINISTRATION24-SEP-2020?FIRST TWO 300 MG ADMINISTRATIONS SEPARATEDBY TWO WEEKS, SUB
     Route: 042
     Dates: start: 20221201
  6. OCREVUS [Suspect]
     Active Substance: OCRELIZUMAB
     Dosage: DATE OF SECOND ADMINISTRATION24-SEP-2020?FIRST TWO 300 MG ADMINISTRATIONS SEPARATEDBY TWO WEEKS, SUB
     Route: 042
     Dates: start: 20230719
  7. OCREVUS [Suspect]
     Active Substance: OCRELIZUMAB
     Dosage: DATE OF SECOND ADMINISTRATION24-SEP-2020?FIRST TWO 300 MG ADMINISTRATIONS SEPARATEDBY TWO WEEKS, SUB
     Route: 042
     Dates: start: 20200904, end: 20200904
  8. FUROSEMIDE [Concomitant]
     Active Substance: FUROSEMIDE
  9. LEVOTHYROXINE [Concomitant]
     Active Substance: LEVOTHYROXINE
  10. OMEPRAZOLE [Concomitant]
     Active Substance: OMEPRAZOLE
  11. CALCIUM CARBONATE [Concomitant]
     Active Substance: CALCIUM CARBONATE
  12. Multivitamin patch [Concomitant]

REACTIONS (1)
  - Death [Fatal]

NARRATIVE: CASE EVENT DATE: 20231101
